APPROVED DRUG PRODUCT: DICLOFENAC SODIUM
Active Ingredient: DICLOFENAC SODIUM
Strength: 1%
Dosage Form/Route: GEL;TOPICAL
Application: A211253 | Product #001
Applicant: PERRIGO PHARMA INTERNATIONAL DAC
Approved: May 16, 2019 | RLD: No | RS: No | Type: OTC